FAERS Safety Report 23861163 (Version 4)
Quarter: 2024Q3

REPORT INFORMATION
  Report Type: Spontaneous
  Country: US (occurrence: None)
  Receive Date: 20240516
  Receipt Date: 20240807
  Transmission Date: 20241016
  Serious: No
  Sender: ASTRAZENECA
  Company Number: 2024A102107

PATIENT
  Age: 21524 Day
  Sex: Male

DRUGS (1)
  1. BYDUREON BCISE [Suspect]
     Active Substance: EXENATIDE

REACTIONS (6)
  - Weight increased [Unknown]
  - Blood glucose fluctuation [Unknown]
  - Blood glucose decreased [Unknown]
  - Device leakage [Unknown]
  - Incorrect dose administered by device [Unknown]
  - Drug effect less than expected [Unknown]

NARRATIVE: CASE EVENT DATE: 20240424
